FAERS Safety Report 6121837-7 (Version None)
Quarter: 2009Q1

REPORT INFORMATION
  Report Type: 
  Country: None (occurrence: None)
  Receive Date: 20090313
  Receipt Date: 20090226
  Transmission Date: 20090719
  Serious: Yes (Life-Threatening)
  Sender: FDA-Public Use
  Company Number: 2009S1003562

PATIENT
  Age: 83 Year
  Sex: Male

DRUGS (17)
  1. ENALAPRIL MALEATE [Suspect]
     Indication: DRUG USE FOR UNKNOWN INDICATION
     Dosage: 10 MG; TWICE A DAY
  2. INSULIN ACTRAPID HUMAN (INSULIN HUMAN) [Suspect]
     Indication: DRUG USE FOR UNKNOWN INDICATION
     Dosage: SUBCUTANEOUS
     Route: 058
  3. PROTAPHANE MC INSULIN [Suspect]
     Indication: DRUG USE FOR UNKNOWN INDICATION
     Dosage: 20 IU; DAILY SUBCUTANEOUS
     Route: 058
  4. ACETYLCYSTEINE [Concomitant]
  5. ALLOPURINOL [Concomitant]
  6. BEROTEC [Concomitant]
  7. DIGITOXIN [Concomitant]
  8. FALICARD [Concomitant]
  9. FALITHROM [Concomitant]
  10. FURORESE [Concomitant]
  11. HYDROCHLOROTHIAZIDE [Concomitant]
  12. LEVOTHYROXINE SODIUM [Concomitant]
  13. NOVALGIN [Concomitant]
  14. OXIS TURBUHALER [Concomitant]
  15. SIMVASTATIN [Concomitant]
  16. SPIRIVA [Concomitant]
  17. TRAMADOL HCL [Concomitant]

REACTIONS (2)
  - DRUG INTERACTION [None]
  - HYPOGLYCAEMIA [None]
